FAERS Safety Report 20789470 (Version 1)
Quarter: 2022Q2

REPORT INFORMATION
  Report Type: Spontaneous
  Country: AT (occurrence: AT)
  Receive Date: 20220505
  Receipt Date: 20220505
  Transmission Date: 20220721
  Serious: Yes (Other)
  Sender: FDA-Public Use
  Company Number: None

PATIENT
  Age: 67 Year
  Sex: Male

DRUGS (1)
  1. ULTRAVIST [Suspect]
     Active Substance: IOPROMIDE
     Indication: Ultrasound scan
     Dosage: IN ACCORDANCE WITH THE EXPERT INFORMATION AND THE RECOMMENDATIONS FOR USE
     Dates: start: 20220224

REACTIONS (3)
  - Type IV hypersensitivity reaction [Unknown]
  - Drug eruption [Unknown]
  - Drug reaction with eosinophilia and systemic symptoms [Unknown]

NARRATIVE: CASE EVENT DATE: 20220224
